FAERS Safety Report 10332231 (Version 1)
Quarter: 2014Q3

REPORT INFORMATION
  Report Type: Report from Study
  Country: CA (occurrence: CA)
  Receive Date: 20140722
  Receipt Date: 20140722
  Transmission Date: 20150326
  Serious: Yes (Hospitalization)
  Sender: FDA-Public Use
  Company Number: CA-BRISTOL-MYERS SQUIBB COMPANY-21213889

PATIENT
  Age: 63 Year
  Sex: Female

DRUGS (12)
  1. ATIVAN [Concomitant]
     Active Substance: LORAZEPAM
  2. CLONIDINE. [Concomitant]
     Active Substance: CLONIDINE
  3. NEXIUM [Concomitant]
     Active Substance: ESOMEPRAZOLE MAGNESIUM
  4. ORENCIA [Suspect]
     Active Substance: ABATACEPT
     Indication: RHEUMATOID ARTHRITIS
     Dosage: 14JUL14 INFUSION WAS CANCELLED
     Route: 042
     Dates: start: 20070815
  5. ACEBUTOLOL [Concomitant]
     Active Substance: ACEBUTOLOL
  6. PREDNISONE. [Concomitant]
     Active Substance: PREDNISONE
  7. ACTONEL [Concomitant]
     Active Substance: RISEDRONATE SODIUM
  8. COD LIVER OIL [Concomitant]
     Active Substance: COD LIVER OIL
  9. ATACAND [Concomitant]
     Active Substance: CANDESARTAN CILEXETIL
  10. LEVOCARB [Concomitant]
     Active Substance: CARBIDOPA\LEVODOPA
  11. METHOTREXATE [Concomitant]
     Active Substance: METHOTREXATE
  12. FOLIC ACID. [Concomitant]
     Active Substance: FOLIC ACID

REACTIONS (1)
  - Myocardial infarction [Recovering/Resolving]

NARRATIVE: CASE EVENT DATE: 20140712
